FAERS Safety Report 23220751 (Version 2)
Quarter: 2023Q4

REPORT INFORMATION
  Report Type: Report from Study
  Country: KR (occurrence: KR)
  Receive Date: 20231123
  Receipt Date: 20231130
  Transmission Date: 20240109
  Serious: Yes (Death, Life-Threatening, Hospitalization)
  Sender: FDA-Public Use
  Company Number: KR-CELLTRION INC.-2023KR021267

PATIENT

DRUGS (15)
  1. CT-P16 [Suspect]
     Active Substance: CT-P16
     Indication: Colorectal cancer metastatic
     Dosage: 200 MG, Q2WEEKS
     Route: 042
     Dates: start: 20230724, end: 20231010
  2. GLUVITA [Concomitant]
     Indication: Rectal cancer
     Dosage: 50 MG, QD
     Route: 048
     Dates: start: 20230719, end: 20231005
  3. LATODINE [Concomitant]
     Indication: Rectal cancer
     Dosage: 10 MG, BID
     Route: 048
     Dates: start: 20230719, end: 20231030
  4. MESIMA EX [Concomitant]
     Indication: Rectal cancer
     Dosage: 1.1 G, BID
     Route: 048
     Dates: start: 20230724, end: 20231030
  5. CNU [Concomitant]
     Indication: Rectal cancer
     Dosage: 1 G, TID
     Route: 048
     Dates: start: 20230719, end: 20231030
  6. MEDIAVEN L [Concomitant]
     Indication: Rectal cancer
     Dosage: 10 MG, TID
     Route: 048
     Dates: start: 20230807, end: 20231030
  7. GLUTHIONE [Concomitant]
     Indication: Rectal cancer
     Dosage: 100 MG, TID
     Route: 048
     Dates: start: 20230719, end: 20231030
  8. DAEWON MEGESTROL ES [Concomitant]
     Indication: Rectal cancer
     Dosage: 625 MG, QD
     Route: 048
     Dates: start: 20230807, end: 20231030
  9. DOXOFYLLINE [Concomitant]
     Active Substance: DOXOFYLLINE
     Indication: Pneumothorax
     Dosage: 400 MG, BID
     Route: 048
     Dates: start: 20230927, end: 20231030
  10. REBAMIPIDE [Concomitant]
     Active Substance: REBAMIPIDE
     Indication: Pneumothorax
     Dosage: 100 MG, BID
     Route: 048
     Dates: start: 20230927, end: 20231030
  11. RIFAMPIN [Concomitant]
     Active Substance: RIFAMPIN
     Indication: Pneumothorax
     Dosage: 150 MG, QD
     Route: 048
     Dates: start: 20230927, end: 20231030
  12. MYAMBUTOL [Concomitant]
     Active Substance: ETHAMBUTOL HYDROCHLORIDE
     Indication: Pneumothorax
     Dosage: 600 MG, QD
     Route: 048
     Dates: start: 20230927, end: 20231030
  13. AZITOPS [Concomitant]
     Indication: Pneumothorax
     Dosage: 250 MG, QD
     Route: 048
     Dates: start: 20230927, end: 20231030
  14. RABEONE [Concomitant]
     Indication: Pneumothorax
     Dosage: 10 MG, QD
     Route: 048
     Dates: start: 20230927, end: 20231030
  15. LUKIO [Concomitant]
     Indication: Pneumothorax
     Dosage: 10 MG, QD
     Route: 048
     Dates: start: 20230927, end: 20231030

REACTIONS (1)
  - Asthenia [Fatal]

NARRATIVE: CASE EVENT DATE: 20231030
